FAERS Safety Report 4988449-X (Version None)
Quarter: 2006Q2

REPORT INFORMATION
  Report Type: 
  Country: None (occurrence: None)
  Receive Date: 20060502
  Receipt Date: 20060418
  Transmission Date: 20061013
  Serious: Yes (Life-Threatening, Hospitalization, Disabling)
  Sender: FDA-Public Use
  Company Number: PHHO2006US06292

PATIENT
  Age: 36 Year
  Sex: Male
  Weight: 87 kg

DRUGS (25)
  1. CERTICAN [Suspect]
     Indication: HEART TRANSPLANT
     Dosage: 1.5 MG, BID
     Route: 048
     Dates: start: 20060412, end: 20060416
  2. CERTICAN [Suspect]
     Dosage: 1.5 MG, BID
     Route: 048
     Dates: start: 20060418
  3. VANCOMYCIN [Concomitant]
  4. SEPTRA [Concomitant]
  5. NYSTATIN [Concomitant]
  6. NEXIUM [Concomitant]
  7. LASIX [Concomitant]
  8. CYTOVENE [Concomitant]
  9. VASOTEC [Concomitant]
  10. SOLU-MEDROL [Concomitant]
  11. NEORAL [Suspect]
     Indication: HEART TRANSPLANT
     Dosage: 175 MG DAILY DOSE
     Dates: start: 20060412, end: 20060416
  12. NEORAL [Suspect]
     Dosage: 375 MG DAILY DOSE
     Route: 048
     Dates: start: 20060417, end: 20060417
  13. NEORAL [Suspect]
     Dosage: 150 MG, BID
     Route: 048
     Dates: start: 20060418
  14. GANCICLOVIR [Concomitant]
  15. PREDNISONE TAB [Concomitant]
     Dosage: 20 MG, QD
     Route: 048
  16. ZESTRIL [Concomitant]
     Dosage: 30 MG, BID
     Route: 048
  17. DIOVAN [Concomitant]
     Dosage: 160 MG, BID
     Route: 048
  18. NORVASC [Concomitant]
     Dosage: 10 MG, QD
     Route: 048
  19. MAGNESIUM OXIDE [Concomitant]
     Dosage: 250 MG, BID
     Route: 048
  20. MYCELEX [Concomitant]
     Dosage: 10 MG, QID
     Route: 048
  21. SURFAK [Concomitant]
  22. OSCAL 500-D [Concomitant]
  23. POTASSIUM CHLORIDE [Concomitant]
  24. FOLIC ACID [Concomitant]
  25. THIAMINE [Concomitant]

REACTIONS (6)
  - CEREBRAL DISORDER [None]
  - CEREBRAL INFARCTION [None]
  - CONVULSION [None]
  - DELIRIUM [None]
  - ELECTROENCEPHALOGRAM ABNORMAL [None]
  - PULMONARY HYPERTENSION [None]
